FAERS Safety Report 8298051-2 (Version None)
Quarter: 2012Q2

REPORT INFORMATION
  Report Type: 
  Country: None (occurrence: None)
  Receive Date: 20120419
  Receipt Date: 20120406
  Transmission Date: 20120825
  Serious: Yes (Hospitalization)
  Sender: FDA-Public Use
  Company Number: US-ROCHE-1035066

PATIENT
  Sex: Male

DRUGS (3)
  1. COPEGUS [Suspect]
     Indication: HEPATITIS C
     Route: 065
     Dates: start: 20111020
  2. TELAPREVIR [Suspect]
     Indication: HEPATITIS C
     Dosage: COMPLETED 12 WEEKS TREATMENT ON 11/DEC/2012, BASELINE WAS 22 MILLION
     Route: 065
     Dates: start: 20111020, end: 20111211
  3. PEGINTERFERON ALFA-2A [Suspect]
     Indication: HEPATITIS C
     Route: 065
     Dates: start: 20111020

REACTIONS (7)
  - BLOOD MAGNESIUM DECREASED [None]
  - DYSPNOEA [None]
  - ANXIETY [None]
  - RED BLOOD CELL COUNT DECREASED [None]
  - INJECTION SITE HAEMATOMA [None]
  - PLATELET COUNT DECREASED [None]
  - PALLOR [None]
